FAERS Safety Report 8454157-6 (Version None)
Quarter: 2012Q2

REPORT INFORMATION
  Report Type: 
  Country: None (occurrence: None)
  Receive Date: 20120620
  Receipt Date: 20110610
  Transmission Date: 20120825
  Serious: No
  Sender: FDA-Public Use
  Company Number: US-TEVA-2011002950

PATIENT
  Sex: Female

DRUGS (3)
  1. OXYCONTIN [Concomitant]
  2. VICODIN [Concomitant]
  3. FENTORA [Suspect]
     Indication: NEOPLASM MALIGNANT
     Route: 002

REACTIONS (1)
  - DRUG INEFFECTIVE [None]
